FAERS Safety Report 17787724 (Version 5)
Quarter: 2020Q2

REPORT INFORMATION
  Report Type: Report from Study
  Country: US (occurrence: US)
  Receive Date: 20200514
  Receipt Date: 20200630
  Transmission Date: 20200714
  Serious: Yes (Death, Hospitalization)
  Sender: FDA-Public Use
  Company Number: US-ACTELION-A-NJ2020-203055

PATIENT
  Age: 1 Year
  Sex: Female
  Weight: 6.35 kg

DRUGS (7)
  1. TRACLEER [Suspect]
     Active Substance: BOSENTAN
     Indication: PULMONARY ARTERIAL HYPERTENSION
     Dosage: 16 MG, BID
     Route: 048
  2. ASPIRIN (E.C.) [Concomitant]
     Active Substance: ASPIRIN
     Dosage: 20.25 MG
     Dates: start: 201910
  3. FUROSEMIDE. [Concomitant]
     Active Substance: FUROSEMIDE
     Dosage: 10 MG, BID
     Dates: start: 201910
  4. SILDENAFIL. [Concomitant]
     Active Substance: SILDENAFIL
     Dosage: 6 MG, BID
     Dates: start: 201910
  5. CHLOROTHIAZIDE. [Concomitant]
     Active Substance: CHLOROTHIAZIDE
     Dosage: 30 MG, BID
     Dates: start: 201910
  6. TRACLEER [Suspect]
     Active Substance: BOSENTAN
     Dosage: 12.5 MG, BID
     Route: 048
     Dates: start: 20191001
  7. REMODULIN [Concomitant]
     Active Substance: TREPROSTINIL
     Dosage: 60 NG/KG, PER MIN
     Route: 042
     Dates: start: 202001

REACTIONS (13)
  - Pulmonary hypertension [Recovering/Resolving]
  - Heart rate increased [Unknown]
  - Hypotension [Unknown]
  - Fluid retention [Unknown]
  - Hypoxia [Recovering/Resolving]
  - Oxygen saturation decreased [Unknown]
  - Device occlusion [Unknown]
  - Death [Fatal]
  - Flushing [Not Recovered/Not Resolved]
  - Discomfort [Unknown]
  - Cardiac operation [Unknown]
  - Hospitalisation [Unknown]
  - Malaise [Unknown]

NARRATIVE: CASE EVENT DATE: 20200623
